FAERS Safety Report 8739781 (Version 2)
Quarter: 2012Q4

REPORT INFORMATION
  Report Type: 
  Country: IT (occurrence: IT)
  Receive Date: 20120823
  Receipt Date: 20120917
  Transmission Date: 20130627
  Serious: Yes (Life-Threatening, Hospitalization)
  Sender: FDA-Public Use
  Company Number: IT-BAYER-2012-086961

PATIENT
  Age: 55 Year
  Sex: Female

DRUGS (1)
  1. ULTRAVIST [Suspect]
     Indication: COMPUTERISED TOMOGRAM
     Dosage: 120 ml, ONCE
     Route: 042
     Dates: start: 20120821, end: 20120821

REACTIONS (10)
  - Hypovolaemic shock [Recovering/Resolving]
  - Erythema [Recovering/Resolving]
  - Cheilitis [Recovering/Resolving]
  - Oedema mouth [Recovering/Resolving]
  - Anaphylactic shock [Recovered/Resolved]
  - Throat irritation [Recovering/Resolving]
  - Blood pressure decreased [Recovering/Resolving]
  - Pulse absent [Recovering/Resolving]
  - Dyspnoea [Recovering/Resolving]
  - Syncope [Unknown]
